FAERS Safety Report 19245803 (Version 2)
Quarter: 2024Q1

REPORT INFORMATION
  Report Type: Spontaneous
  Country: BE (occurrence: BE)
  Receive Date: 20210511
  Receipt Date: 20240331
  Transmission Date: 20240409
  Serious: Yes (Death, Other)
  Sender: FDA-Public Use
  Company Number: BE-CELLTRION INC.-2021BE006223

PATIENT

DRUGS (3)
  1. RITUXIMAB [Suspect]
     Active Substance: RITUXIMAB
     Indication: Chronic lymphocytic leukaemia
     Dosage: UNK
     Route: 065
  2. CHLORAMBUCIL [Suspect]
     Active Substance: CHLORAMBUCIL
     Indication: Chronic lymphocytic leukaemia
     Dosage: UNK
     Route: 065
  3. TECENTRIQ [Suspect]
     Active Substance: ATEZOLIZUMAB
     Indication: Progressive multifocal leukoencephalopathy
     Dosage: 1200 MG EVERY 3 WEEKS
     Route: 042

REACTIONS (5)
  - Immune reconstitution inflammatory syndrome [Fatal]
  - Progressive multifocal leukoencephalopathy [Fatal]
  - Atrioventricular block complete [Unknown]
  - Enteritis [Unknown]
  - Psoriasis [Unknown]

NARRATIVE: CASE EVENT DATE: 20200101
